FAERS Safety Report 4890764-5 (Version None)
Quarter: 2006Q1

REPORT INFORMATION
  Report Type: 
  Country: None (occurrence: None)
  Receive Date: 20060125
  Receipt Date: 20050701
  Transmission Date: 20060701
  Serious: Yes (Other)
  Sender: FDA-Public Use
  Company Number: US-BRISTOL-MYERS SQUIBB COMPANY-13029582

PATIENT
  Age: 74 Year
  Sex: Male

DRUGS (8)
  1. AZACTAM [Suspect]
     Indication: PYELONEPHRITIS
     Dosage: THERAPY 30-MAY-2005 TO 10-JUN-2005, 22-JUN-2005 TO 08-JUL-2005
     Route: 042
     Dates: start: 20050530, end: 20050708
  2. AZACTAM [Suspect]
     Indication: URINARY TRACT INFECTION
     Dosage: THERAPY 30-MAY-2005 TO 10-JUN-2005, 22-JUN-2005 TO 08-JUL-2005
     Route: 042
     Dates: start: 20050530, end: 20050708
  3. TOPROL [Concomitant]
  4. MICARDIS [Concomitant]
  5. ALLOPURINOL [Concomitant]
  6. ASPIRIN [Concomitant]
  7. FOLTX [Concomitant]
  8. LIPITOR [Concomitant]

REACTIONS (2)
  - HEPATIC ENZYME INCREASED [None]
  - URINARY TRACT INFECTION [None]
